FAERS Safety Report 6841866-5 (Version None)
Quarter: 2010Q3

REPORT INFORMATION
  Report Type: 
  Country: None (occurrence: None)
  Receive Date: 20100714
  Receipt Date: 20070716
  Transmission Date: 20110219
  Serious: No
  Sender: FDA-Public Use
  Company Number: US-PFIZER INC-2007060286

PATIENT
  Sex: Female
  Weight: 54.4 kg

DRUGS (12)
  1. CHANTIX [Suspect]
     Indication: SMOKING CESSATION THERAPY
     Dates: start: 20070601
  2. OSCAL [Concomitant]
     Indication: OSTEOPOROSIS
  3. FOSAMAX [Concomitant]
  4. NORVASC [Concomitant]
  5. TYLENOL (CAPLET) [Concomitant]
  6. FLONASE [Concomitant]
  7. SPIRIVA [Concomitant]
  8. VITAMIN B-12 [Concomitant]
  9. NEXIUM [Concomitant]
  10. ADVAIR DISKUS 100/50 [Concomitant]
  11. ZYRTEC [Concomitant]
  12. SINEMET [Concomitant]
     Indication: RESTLESS LEGS SYNDROME

REACTIONS (2)
  - GASTRIC DISORDER [None]
  - NAUSEA [None]
